FAERS Safety Report 15372249 (Version 4)
Quarter: 2019Q2

REPORT INFORMATION
  Report Type: Spontaneous
  Country: US (occurrence: US)
  Receive Date: 20180911
  Receipt Date: 20190513
  Transmission Date: 20190711
  Serious: Yes (Hospitalization)
  Sender: FDA-Public Use
  Company Number: US-ACTELION-A-NJ2018-178546

PATIENT
  Sex: Female
  Weight: 77.1 kg

DRUGS (5)
  1. REVATIO [Concomitant]
     Active Substance: SILDENAFIL CITRATE
  2. COUMADIN [Concomitant]
     Active Substance: WARFARIN SODIUM
  3. TRACLEER [Suspect]
     Active Substance: BOSENTAN
     Indication: PULMONARY ARTERIAL HYPERTENSION
     Dosage: 125 MG, BID
     Route: 048
  4. AMLODIPINE [Concomitant]
     Active Substance: AMLODIPINE BESYLATE
  5. ELIQUIS [Concomitant]
     Active Substance: APIXABAN

REACTIONS (13)
  - Fatigue [Unknown]
  - Generalised oedema [Unknown]
  - Cardiac failure [Unknown]
  - Swelling [Unknown]
  - Palpitations [Unknown]
  - Chest pain [Unknown]
  - Dizziness [Unknown]
  - Cough [Unknown]
  - Exercise tolerance decreased [Unknown]
  - Cardiac failure congestive [Unknown]
  - Dyspnoea [Unknown]
  - Liver disorder [Unknown]
  - Rehabilitation therapy [Unknown]
